FAERS Safety Report 7602886-6 (Version None)
Quarter: 2011Q3

REPORT INFORMATION
  Report Type: 
  Country: None (occurrence: None)
  Receive Date: 20110711
  Receipt Date: 20110711
  Transmission Date: 20111222
  Serious: Yes (Life-Threatening, Hospitalization)
  Sender: FDA-Public Use
  Company Number: None

PATIENT
  Age: 55 Year
  Sex: Female
  Weight: 47.5 kg

DRUGS (12)
  1. BARIUM SULFATE FOR SUSPENSION 96% W/W EZ EM [Suspect]
     Indication: SCAN WITH CONTRAST
     Dosage: 25 CC ONCE PO SINGLE DOSE
     Route: 048
  2. MORPHINE SULFATE [Concomitant]
  3. ENSURE [Concomitant]
  4. MOMETASONE FUROATE [Concomitant]
  5. MIRTAZAPINE [Concomitant]
  6. VIT D3 [Concomitant]
  7. BARIUM SULFATE TABLETS 700 MG EZ EM [Suspect]
     Indication: SCAN WITH CONTRAST
     Dosage: 10 GRAINS ONCE PO SINGLE DOSE
     Route: 048
  8. MULTI-VITAMIN [Concomitant]
  9. GABAPENTIN [Concomitant]
  10. PAROXETINE HCL [Concomitant]
  11. HYDROXYZINE HCL [Concomitant]
  12. VITAMIN B COMPLEX CAP [Concomitant]

REACTIONS (6)
  - DYSPNOEA [None]
  - TACHYPNOEA [None]
  - SYNCOPE [None]
  - TACHYCARDIA [None]
  - DOCUMENTED HYPERSENSITIVITY TO ADMINISTERED DRUG [None]
  - GRAND MAL CONVULSION [None]
